FAERS Safety Report 6892554-0 (Version None)
Quarter: 2010Q3

REPORT INFORMATION
  Report Type: 
  Country: None (occurrence: None)
  Receive Date: 20100731
  Receipt Date: 20080627
  Transmission Date: 20110219
  Serious: No
  Sender: FDA-Public Use
  Company Number: US-PFIZER INC-2008041056

PATIENT
  Sex: Male
  Weight: 77.11 kg

DRUGS (5)
  1. INSPRA [Suspect]
     Indication: PRIMARY HYPERALDOSTERONISM
     Route: 048
     Dates: start: 20040629
  2. INSPRA [Suspect]
     Indication: HYPERADRENALISM
  3. NIACIN [Concomitant]
  4. ACETYLSALICYLIC ACID SRT [Concomitant]
  5. SPIRONOLACTONE [Concomitant]

REACTIONS (3)
  - ABDOMINAL DISTENSION [None]
  - ABDOMINAL PAIN UPPER [None]
  - ERECTILE DYSFUNCTION [None]
